FAERS Safety Report 14970367 (Version 1)
Quarter: 2018Q2

REPORT INFORMATION
  Report Type: Spontaneous
  Country: US (occurrence: US)
  Receive Date: 20180604
  Receipt Date: 20180604
  Transmission Date: 20180711
  Serious: No
  Sender: FDA-Public Use
  Company Number: US-ALLERGAN-1771525US

PATIENT
  Sex: Female

DRUGS (2)
  1. KYBELLA [Suspect]
     Active Substance: DEOXYCHOLIC ACID
     Dosage: 4 ML, SINGLE
     Route: 058
     Dates: start: 20170801, end: 20170801
  2. KYBELLA [Suspect]
     Active Substance: DEOXYCHOLIC ACID
     Indication: FAT TISSUE INCREASED
     Dosage: 4 ML, SINGLE
     Route: 058
     Dates: start: 20170418, end: 20170418

REACTIONS (1)
  - Urticaria [Recovered/Resolved with Sequelae]

NARRATIVE: CASE EVENT DATE: 2017
